FAERS Safety Report 23214440 (Version 1)
Quarter: 2023Q4

REPORT INFORMATION
  Report Type: Spontaneous
  Country: CA (occurrence: CA)
  Receive Date: 20231121
  Receipt Date: 20231121
  Transmission Date: 20240109
  Serious: Yes (Hospitalization)
  Sender: FDA-Public Use
  Company Number: CA-TEVA-2023-CA-2948581

PATIENT
  Age: 46 Year
  Sex: Female

DRUGS (1)
  1. CARBAMAZEPINE [Suspect]
     Active Substance: CARBAMAZEPINE
     Indication: Trigeminal neuralgia
     Route: 065

REACTIONS (4)
  - Blister [Recovering/Resolving]
  - Eye injury [Recovering/Resolving]
  - Stevens-Johnson syndrome [Recovering/Resolving]
  - Swelling [Recovering/Resolving]
